FAERS Safety Report 9105603 (Version 2)
Quarter: 2014Q4

REPORT INFORMATION
  Report Type: Report from Study
  Country: KR (occurrence: KR)
  Receive Date: 20130220
  Receipt Date: 20141204
  Transmission Date: 20150529
  Serious: Yes (Other)
  Sender: FDA-Public Use
  Company Number: KR-OTSUKA-US-2013-10246

PATIENT

DRUGS (1)
  1. BUSULFEX [Suspect]
     Active Substance: BUSULFAN
     Indication: NON-HODGKIN^S LYMPHOMA
     Dosage: 3.2 MG/KG, QD
     Route: 042

REACTIONS (2)
  - Neuropathy peripheral [Unknown]
  - Disease recurrence [Unknown]
